FAERS Safety Report 9959727 (Version 1)
Quarter: 2014Q1

REPORT INFORMATION
  Report Type: Report from Study
  Country: US (occurrence: US)
  Receive Date: 20140305
  Receipt Date: 20140305
  Transmission Date: 20141002
  Serious: No
  Sender: FDA-Public Use
  Company Number: US-ABBVIE-13P-163-1107220-00

PATIENT
  Age: 42 Year
  Sex: Female

DRUGS (4)
  1. HUMIRA [Suspect]
     Indication: PSORIASIS
     Dosage: LOADIND DOSE 80 MG
     Dates: start: 20130617
  2. PRILOSEC [Concomitant]
     Indication: GASTROOESOPHAGEAL REFLUX DISEASE
  3. LEVOTHYROXINE [Concomitant]
     Indication: HYPOTHYROIDISM
     Route: 048
  4. MINOCYCLINE [Concomitant]
     Indication: ACNE
     Route: 048

REACTIONS (8)
  - Laceration [Not Recovered/Not Resolved]
  - Local swelling [Not Recovered/Not Resolved]
  - Injection site bruising [Recovering/Resolving]
  - Nausea [Recovering/Resolving]
  - Pruritus [Recovering/Resolving]
  - Injection site swelling [Not Recovered/Not Resolved]
  - Injection site erythema [Not Recovered/Not Resolved]
  - Injection site warmth [Not Recovered/Not Resolved]
